FAERS Safety Report 4763518-8 (Version None)
Quarter: 2005Q3

REPORT INFORMATION
  Report Type: 
  Country: None (occurrence: None)
  Receive Date: 20050908
  Receipt Date: 20050902
  Transmission Date: 20060218
  Serious: Yes (Life-Threatening, Hospitalization)
  Sender: FDA-Public Use
  Company Number: DE-JNJFOC-20050900725

PATIENT
  Age: 63 Year
  Sex: Male

DRUGS (3)
  1. RISPERDAL CONSTA [Suspect]
     Route: 030
  2. RISPERDAL CONSTA [Suspect]
     Indication: SCHIZOPHRENIA
     Route: 030
  3. CLOZAPINE [Suspect]
     Indication: DRUG USE FOR UNKNOWN INDICATION
     Route: 065

REACTIONS (14)
  - AMNESIA [None]
  - CHILLS [None]
  - DRUG INEFFECTIVE [None]
  - FALL [None]
  - GENERAL PHYSICAL HEALTH DETERIORATION [None]
  - INCONTINENCE [None]
  - PNEUMONIA [None]
  - SALIVARY HYPERSECRETION [None]
  - SPEECH DISORDER [None]
  - STUPOR [None]
  - TACHYARRHYTHMIA [None]
  - THERAPEUTIC RESPONSE DECREASED [None]
  - URINARY INCONTINENCE [None]
  - WAXY FLEXIBILITY [None]
